FAERS Safety Report 5238906-6 (Version None)
Quarter: 2007Q1

REPORT INFORMATION
  Report Type: 
  Country: None (occurrence: None)
  Receive Date: 20070215
  Receipt Date: 20070208
  Transmission Date: 20070707
  Serious: Yes (Other)
  Sender: FDA-Public Use
  Company Number: US-PFIZER INC-2007011124

PATIENT
  Age: 52 Year
  Sex: Female
  Weight: 78.5 kg

DRUGS (3)
  1. CHANTIX [Suspect]
     Indication: EX-SMOKER
     Route: 048
  2. ZELNORM [Concomitant]
     Dosage: FREQ:ONCE DAILY
  3. ESTRACE [Concomitant]

REACTIONS (2)
  - FAECAL INCONTINENCE [None]
  - URINARY INCONTINENCE [None]
